FAERS Safety Report 14882010 (Version 1)
Quarter: 2018Q2

REPORT INFORMATION
  Report Type: Spontaneous
  Country: FR (occurrence: FR)
  Receive Date: 20180511
  Receipt Date: 20180511
  Transmission Date: 20180711
  Serious: Yes (Death)
  Sender: FDA-Public Use
  Company Number: FR-SA-2018SA127726

PATIENT
  Age: 28 Year
  Sex: Male

DRUGS (14)
  1. LANTUS SOLOSTAR [Suspect]
     Active Substance: INSULIN GLARGINE
     Route: 065
  2. METFORMIN [Suspect]
     Active Substance: METFORMIN HYDROCHLORIDE
     Route: 065
  3. THIOCOLCHICOSIDE [Suspect]
     Active Substance: THIOCOLCHICOSIDE
     Route: 065
  4. HUMALOG [Suspect]
     Active Substance: INSULIN LISPRO
     Route: 065
  5. TERCIAN [Suspect]
     Active Substance: CYAMEMAZINE
     Route: 065
  6. FLUOXETINE [Suspect]
     Active Substance: FLUOXETINE HYDROCHLORIDE
     Route: 065
  7. FUROSEMIDE. [Suspect]
     Active Substance: FUROSEMIDE
     Route: 065
  8. BROMAZEPAM [Suspect]
     Active Substance: BROMAZEPAM
     Route: 065
  9. NUCTALON [Suspect]
     Active Substance: ESTAZOLAM
     Route: 065
  10. NOCTAMIDE [Suspect]
     Active Substance: LORMETAZEPAM
     Route: 065
  11. FENOFIBRATE. [Suspect]
     Active Substance: FENOFIBRATE
     Route: 065
  12. ACTISKENAN [Suspect]
     Active Substance: MORPHINE SULFATE
     Route: 065
  13. ZOPICLONE [Suspect]
     Active Substance: ZOPICLONE
     Route: 065
  14. APROVEL [Suspect]
     Active Substance: IRBESARTAN
     Route: 048

REACTIONS (2)
  - Myocardial infarction [Fatal]
  - Acute myocardial infarction [Fatal]
